FAERS Safety Report 17806213 (Version 1)
Quarter: 2020Q2

REPORT INFORMATION
  Report Type: Spontaneous
  Country: CA (occurrence: CA)
  Receive Date: 20200520
  Receipt Date: 20200520
  Transmission Date: 20200714
  Serious: Yes (Other)
  Sender: FDA-Public Use
  Company Number: CA-ROCHE-2600657

PATIENT
  Age: 50 Year
  Sex: Female

DRUGS (7)
  1. IMATINIB. [Suspect]
     Active Substance: IMATINIB MESYLATE
     Indication: GRAFT VERSUS HOST DISEASE
     Route: 065
  2. RUXOLITINIB [Suspect]
     Active Substance: RUXOLITINIB
     Indication: GRAFT VERSUS HOST DISEASE
     Route: 048
  3. TACROLIMUS. [Suspect]
     Active Substance: TACROLIMUS
     Indication: GRAFT VERSUS HOST DISEASE
     Route: 065
  4. MYCOPHENOLATE MOFETIL. [Suspect]
     Active Substance: MYCOPHENOLATE MOFETIL
     Indication: GRAFT VERSUS HOST DISEASE
     Route: 065
  5. CICLOSPORIN [Suspect]
     Active Substance: CYCLOSPORINE
     Indication: GRAFT VERSUS HOST DISEASE
     Route: 065
  6. RITUXIMAB. [Suspect]
     Active Substance: RITUXIMAB
     Indication: GRAFT VERSUS HOST DISEASE
     Route: 065
  7. PREDNISONE. [Suspect]
     Active Substance: PREDNISONE
     Indication: GRAFT VERSUS HOST DISEASE
     Route: 065

REACTIONS (5)
  - Aspergillus infection [Unknown]
  - Toxicity to various agents [Unknown]
  - Graft versus host disease [Unknown]
  - Product use in unapproved indication [Unknown]
  - Off label use [Unknown]
